FAERS Safety Report 9877985 (Version 1)
Quarter: 2014Q1

REPORT INFORMATION
  Report Type: Spontaneous
  Country: FR (occurrence: FR)
  Receive Date: 20140206
  Receipt Date: 20140206
  Transmission Date: 20141002
  Serious: Yes (Death, Hospitalization)
  Sender: FDA-Public Use
  Company Number: PHHY2014FR014353

PATIENT
  Age: 76 Year
  Sex: Male

DRUGS (1)
  1. VOLTARENE [Suspect]
     Indication: INFLAMMATION
     Dosage: UNK UKN, UNK
     Route: 048
     Dates: start: 2010, end: 20101001

REACTIONS (1)
  - Cellulitis [Fatal]
